FAERS Safety Report 5266748-4 (Version None)
Quarter: 2007Q1

REPORT INFORMATION
  Report Type: 
  Country: None (occurrence: None)
  Receive Date: 20070305
  Receipt Date: 20070222
  Transmission Date: 20070707
  Serious: No
  Sender: FDA-Public Use
  Company Number: A0591990A

PATIENT
  Age: 5 Year
  Sex: Female
  Weight: 16.0573 kg

DRUGS (11)
  1. ARRANON INJECTION (NELARABINE) [Suspect]
     Indication: LYMPHOCYTIC LEUKAEMIA
     Dosage: 400 MG/M2/CYCLIC/ INTRAVENOUS
     Route: 042
     Dates: start: 20050614
  2. DOXORUBICIN HYDROCHLORIDE [Suspect]
     Indication: LYMPHOCYTIC LEUKAEMIA
     Dosage: 25 MG/ML/ CYCLIC/ INTRAVENOUS PUSH
     Route: 042
     Dates: start: 20050614
  3. METHOTREXATE [Suspect]
     Indication: LYMPHOCYTIC LEUKAEMIA
     Dosage: CYCLIC/ INTRATHECAL
     Route: 037
  4. VINCRISTINE [Suspect]
     Indication: LYMPHOCYTIC LEUKAEMIA
     Dosage: 1.5 MG/M2/ CYCLIC/ INTRAVENOUS
     Route: 042
     Dates: start: 20050614
  5. COLASPASE (FORMULATION UNKNOWN) (ASPARAGINASE) [Suspect]
     Indication: LYMPHOCYTIC LEUKAEMIA
     Dosage: 2500 UNIT / SINGLE DOSE/ INTRAMUSCULAR
     Route: 030
  6. CYCLOPHOSPHAMIDE [Suspect]
     Indication: LYMPHOCYTIC LEUKAEMIA
     Dosage: 1000 MG/M2/ SINGLE DOSE/ INTRAVENOUS
     Route: 042
  7. CYTARABINE [Suspect]
     Indication: LYMPHOCYTIC LEUKAEMIA
     Dosage: 75 MG/M2 / CYCLIC / INTRAVENOUS PUSH
     Route: 042
  8. THIOGUANINE [Suspect]
     Indication: LYMPHOCYTIC LEUKAEMIA
     Dosage: CYCLIC / ORAL
     Route: 048
  9. CO-TRIMOXAZOLE [Concomitant]
  10. VANCOMYCIN [Concomitant]
  11. ONDANSETRON HCL [Concomitant]

REACTIONS (4)
  - FALL [None]
  - GAIT DISTURBANCE [None]
  - LEUKOENCEPHALOPATHY [None]
  - PERIPHERAL MOTOR NEUROPATHY [None]
